FAERS Safety Report 7883472-X (Version None)
Quarter: 2011Q4

REPORT INFORMATION
  Report Type: 
  Country: None (occurrence: None)
  Receive Date: 20111102
  Receipt Date: 20111024
  Transmission Date: 20120403
  Serious: Yes (Other)
  Sender: FDA-Public Use
  Company Number: US-US-EMD SERONO, INC.-7091534

PATIENT
  Sex: Female

DRUGS (2)
  1. REBIF [Suspect]
     Indication: PRODUCT USED FOR UNKNOWN INDICATION
     Route: 058
     Dates: start: 20100628, end: 20110101
  2. REBIF [Suspect]
     Route: 058
     Dates: start: 20111001

REACTIONS (4)
  - ABSCESS LIMB [None]
  - INSOMNIA [None]
  - VISION BLURRED [None]
  - INFLUENZA LIKE ILLNESS [None]
